FAERS Safety Report 5114223-X (Version None)
Quarter: 2006Q3

REPORT INFORMATION
  Report Type: 
  Country: None (occurrence: None)
  Receive Date: 20060925
  Receipt Date: 20060307
  Transmission Date: 20061208
  Serious: Yes (Death)
  Sender: FDA-Public Use
  Company Number: JP-SANOFI-SYNTHELABO-F01200600670

PATIENT
  Sex: Male
  Weight: 58 kg

DRUGS (3)
  1. CALCIUM LEVOFOLINATE [Suspect]
     Dosage: 150 MG/BODY=94.9 MG/M2
     Route: 042
     Dates: start: 20051011, end: 20051012
  2. FLUOROURACIL [Suspect]
     Dosage: 650 MG/BODY=411.4 MG/M2 IN BOLUS THEN 1000 MG/BODY=632.9 MG/M2 AS CONTINUOUS INFUSION
     Route: 042
     Dates: start: 20051011, end: 20051012
  3. OXALIPLATIN [Suspect]
     Indication: RECTAL CANCER
     Dosage: 140 MG/BODY=88.6 MG/M2
     Route: 042
     Dates: start: 20051011, end: 20051011

REACTIONS (3)
  - LEUKOPENIA [None]
  - NEUTROPENIA [None]
  - SEPSIS [None]
